FAERS Safety Report 10364850 (Version 2)
Quarter: 2014Q3

REPORT INFORMATION
  Report Type: Other
  Country: IT (occurrence: IT)
  Receive Date: 20140806
  Receipt Date: 20140806
  Transmission Date: 20150326
  Serious: Yes (Other)
  Sender: FDA-Public Use
  Company Number: IT-MYLAN-2014S1009158

PATIENT

DRUGS (4)
  1. NORVASC [Suspect]
     Active Substance: AMLODIPINE BESYLATE
     Indication: PRODUCT USED FOR UNKNOWN INDICATION
     Dosage: 200 MG,TOTAL
     Route: 048
     Dates: start: 20130712
  2. ENALAPRIL MALEATE. [Suspect]
     Active Substance: ENALAPRIL MALEATE
     Indication: PRODUCT USED FOR UNKNOWN INDICATION
     Dosage: 600 MG,TOTAL
     Route: 048
     Dates: start: 20130712
  3. MINIAS [Suspect]
     Active Substance: LORMETAZEPAM
     Indication: PRODUCT USED FOR UNKNOWN INDICATION
     Dosage: 40 MG,TOTAL
     Dates: start: 20130712
  4. MUSCORIL [Suspect]
     Active Substance: THIOCOLCHICOSIDE
     Indication: PRODUCT USED FOR UNKNOWN INDICATION
     Dosage: 80 MG,TOTAL
     Route: 048
     Dates: start: 20130712

REACTIONS (5)
  - Intentional self-injury [Recovering/Resolving]
  - Depressed level of consciousness [Recovering/Resolving]
  - Overdose [Recovering/Resolving]
  - Drug abuse [Recovering/Resolving]
  - Headache [Recovering/Resolving]

NARRATIVE: CASE EVENT DATE: 20130712
